FAERS Safety Report 6892826-X (Version None)
Quarter: 2010Q3

REPORT INFORMATION
  Report Type: 
  Country: None (occurrence: None)
  Receive Date: 20100731
  Receipt Date: 20081007
  Transmission Date: 20110219
  Serious: Yes (Other)
  Sender: FDA-Public Use
  Company Number: US-PFIZER INC-2008078673

PATIENT
  Sex: Male
  Weight: 99.8 kg

DRUGS (2)
  1. AMLODIPINE [Suspect]
     Indication: HYPERTENSION
     Dosage: DAILY
     Dates: start: 20080901
  2. NORVASC [Suspect]
     Indication: HYPERTENSION
     Dosage: DAILY
     Dates: start: 20060101

REACTIONS (1)
  - BLOOD PRESSURE INCREASED [None]
